FAERS Safety Report 6310380-8 (Version None)
Quarter: 2009Q3

REPORT INFORMATION
  Report Type: 
  Country: None (occurrence: None)
  Receive Date: 20090811
  Receipt Date: 20090803
  Transmission Date: 20100115
  Serious: Yes (Other)
  Sender: FDA-Public Use
  Company Number: TRP_06346_2009

PATIENT
  Age: 57 Year
  Sex: Male

DRUGS (2)
  1. RIBASPHERE [Suspect]
     Indication: DRUG USE FOR UNKNOWN INDICATION
     Dosage: DF
  2. PEGASYS [Suspect]
     Indication: DRUG USE FOR UNKNOWN INDICATION
     Dosage: DF

REACTIONS (12)
  - ASTHENIA [None]
  - CHILLS [None]
  - COUGH [None]
  - DECREASED APPETITE [None]
  - DIZZINESS [None]
  - DYSGEUSIA [None]
  - DYSSTASIA [None]
  - IMPAIRED WORK ABILITY [None]
  - PRURITUS [None]
  - PYREXIA [None]
  - VOMITING [None]
  - WEIGHT DECREASED [None]
